FAERS Safety Report 23937777 (Version 1)
Quarter: 2024Q2

REPORT INFORMATION
  Report Type: Spontaneous
  Country: MM (occurrence: MM)
  Receive Date: 20240604
  Receipt Date: 20240604
  Transmission Date: 20240716
  Serious: Yes (Death)
  Sender: FDA-Public Use
  Company Number: MM-JNJFOC-20240585632

PATIENT
  Age: 34 Year
  Sex: Male
  Weight: 45 kg

DRUGS (19)
  1. SIRTURO [Suspect]
     Active Substance: BEDAQUILINE FUMARATE
     Indication: Tuberculosis
     Route: 048
     Dates: start: 20240404, end: 20240406
  2. LEVOFLOXACIN [Suspect]
     Active Substance: LEVOFLOXACIN
     Indication: Tuberculosis
     Route: 048
     Dates: start: 20240404, end: 20240406
  3. CLOFAZIMINE [Suspect]
     Active Substance: CLOFAZIMINE
     Indication: Tuberculosis
     Route: 048
     Dates: start: 20240404, end: 20240406
  4. PYRAZINAMIDE [Suspect]
     Active Substance: PYRAZINAMIDE
     Indication: Tuberculosis
     Route: 048
     Dates: start: 20240404, end: 20240406
  5. ETHAMBUTOL [Suspect]
     Active Substance: ETHAMBUTOL HYDROCHLORIDE
     Indication: Tuberculosis
     Route: 048
     Dates: start: 20240404, end: 20240406
  6. ISONIAZID [Suspect]
     Active Substance: ISONIAZID
     Indication: Tuberculosis
     Route: 048
     Dates: start: 20240404, end: 20240406
  7. ETHIONAMIDE [Suspect]
     Active Substance: ETHIONAMIDE
     Indication: Tuberculosis
     Route: 048
     Dates: start: 20240404, end: 20240406
  8. PYRIDOXINE [Concomitant]
     Active Substance: PYRIDOXINE
     Dosage: BD
     Dates: start: 20240404, end: 20240406
  9. FEFOL [FERROUS SULFATE EXSICCATED;FOLIC ACID] [Concomitant]
     Indication: Anaemia
     Dosage: 2 TAB BD
     Route: 065
     Dates: start: 20240402, end: 20240406
  10. FOLIC ACID [Concomitant]
     Active Substance: FOLIC ACID
     Indication: Anaemia
     Dosage: 1 TAB BD
     Route: 065
     Dates: start: 20240402, end: 20240406
  11. ITRACONAZOLE [Concomitant]
     Active Substance: ITRACONAZOLE
     Indication: Penicillium infection
     Dosage: 400 HS
     Dates: start: 20240405, end: 20240406
  12. CEFTRIAXONE [Concomitant]
     Active Substance: CEFTRIAXONE\CEFTRIAXONE SODIUM
     Indication: Pneumonia bacterial
     Route: 042
     Dates: start: 20240403, end: 20240406
  13. COTRIMOXAZOLE [Concomitant]
     Active Substance: SULFAMETHOXAZOLE\TRIMETHOPRIM
     Dosage: 960MG (2-2-1.5) ORAL
     Route: 048
     Dates: start: 20240402, end: 20240406
  14. SODIUM LACTATE [Concomitant]
     Active Substance: SODIUM LACTATE
     Indication: Hypotension
     Dates: start: 20240405, end: 20240405
  15. DEXTROSE [Concomitant]
     Active Substance: DEXTROSE\DEXTROSE MONOHYDRATE
     Indication: Hypotension
     Dosage: 1 BOT STAT?5% DEXTROSE IN WATER
     Dates: start: 20240404, end: 20240404
  16. ALBUTEROL [Concomitant]
     Active Substance: ALBUTEROL
     Indication: Oxygen saturation decreased
     Dosage: 2 PUFFS PRN
     Route: 065
     Dates: start: 20240405, end: 20240406
  17. ALBUTEROL [Concomitant]
     Active Substance: ALBUTEROL
     Indication: Asthma
  18. HYDROCORTISONE [Concomitant]
     Active Substance: HYDROCORTISONE
     Indication: Dyspnoea
     Dosage: STAT AND PRN
     Dates: start: 20240403, end: 20240406
  19. HYDROCORTISONE [Concomitant]
     Active Substance: HYDROCORTISONE
     Indication: Oxygen saturation decreased

REACTIONS (1)
  - Death [Fatal]

NARRATIVE: CASE EVENT DATE: 20240406
